FAERS Safety Report 7305282-4 (Version None)
Quarter: 2011Q1

REPORT INFORMATION
  Report Type: 
  Country: None (occurrence: None)
  Receive Date: 20110222
  Receipt Date: 20110214
  Transmission Date: 20110831
  Serious: Yes (Hospitalization)
  Sender: FDA-Public Use
  Company Number: FR-PFIZER INC-2011031887

PATIENT
  Age: 70 Year
  Sex: Male

DRUGS (1)
  1. RAPAMUNE [Suspect]
     Dosage: UNK
     Dates: start: 20090601

REACTIONS (1)
  - PULMONARY GRANULOMA [None]
